FAERS Safety Report 4990984-5 (Version None)
Quarter: 2006Q2

REPORT INFORMATION
  Report Type: 
  Country: None (occurrence: None)
  Receive Date: 20060503
  Receipt Date: 20030605
  Transmission Date: 20061013
  Serious: Yes (Disabling)
  Sender: FDA-Public Use
  Company Number: US-MERCK-0306USA00686

PATIENT
  Age: 20 Year
  Sex: Female
  Weight: 55 kg

DRUGS (4)
  1. VIOXX [Suspect]
     Indication: DYSMENORRHOEA
     Route: 048
     Dates: start: 20001129, end: 20010516
  2. VIOXX [Suspect]
     Route: 048
     Dates: start: 20001129, end: 20010516
  3. VIOXX [Suspect]
     Indication: ARTHRITIS
     Route: 048
     Dates: start: 20001129, end: 20010516
  4. VIOXX [Suspect]
     Route: 048
     Dates: start: 20001129, end: 20010516

REACTIONS (12)
  - ARTHRITIS [None]
  - BACK INJURY [None]
  - BACK PAIN [None]
  - BIPOLAR DISORDER [None]
  - BLOOD PRESSURE ABNORMAL [None]
  - HEADACHE [None]
  - HYPERTENSION [None]
  - MUSCLE SPASMS [None]
  - NECK PAIN [None]
  - SCOLIOSIS [None]
  - SWELLING [None]
  - VISION BLURRED [None]
